FAERS Safety Report 5903870-0 (Version None)
Quarter: 2008Q3

REPORT INFORMATION
  Report Type: 
  Country: None (occurrence: None)
  Receive Date: 20080919
  Receipt Date: 20080603
  Transmission Date: 20090109
  Serious: No
  Sender: FDA-Public Use
  Company Number: US-WYE-H04368408

PATIENT
  Age: 65 Year
  Sex: Female
  Weight: 108.05 kg

DRUGS (10)
  1. PRISTIQ [Suspect]
     Indication: FIBROMYALGIA
     Dosage: 50 MG 1 X PER 1 DAY, ORAL
     Route: 048
     Dates: start: 20080501
  2. PRISTIQ [Suspect]
     Indication: PAIN
     Dosage: 50 MG 1 X PER 1 DAY, ORAL
     Route: 048
     Dates: start: 20080501
  3. NEXIUM [Concomitant]
  4. LEVOTHYROXINE SODIUM [Concomitant]
  5. HYZAAR [Concomitant]
  6. NAPROSYN [Concomitant]
  7. NEURONTIN [Concomitant]
  8. GLUCOVANCE [Concomitant]
  9. OXYCODONE HCL [Concomitant]
  10. MAGNESIUM (MAGNESIUM) [Concomitant]

REACTIONS (2)
  - CONDITION AGGRAVATED [None]
  - PAIN [None]
